FAERS Safety Report 8614213 (Version 2)
Quarter: 2013Q4

REPORT INFORMATION
  Report Type: Spontaneous
  Country: US (occurrence: US)
  Receive Date: 20120614
  Receipt Date: 20131002
  Transmission Date: 20140711
  Serious: Yes (Other)
  Sender: FDA-Public Use
  Company Number: US-PFIZER INC-2012139951

PATIENT
  Sex: Female

DRUGS (4)
  1. ZOLOFT [Suspect]
     Dosage: UNK
     Route: 064
     Dates: start: 2003, end: 2005
  2. ZOLOFT [Suspect]
     Dosage: UNK
     Route: 064
     Dates: start: 2008, end: 2012
  3. PRENATAL VITAMINS [Concomitant]
     Dosage: UNK
     Route: 064
  4. TYLENOL [Concomitant]
     Dosage: UNK
     Route: 064

REACTIONS (6)
  - Maternal exposure during pregnancy [Unknown]
  - Otitis media [Unknown]
  - Bronchial hyperreactivity [Unknown]
  - Developmental delay [Unknown]
  - Gastrooesophageal reflux disease [Unknown]
  - Premature baby [Unknown]
